FAERS Safety Report 5300398-6 (Version None)
Quarter: 2007Q2

REPORT INFORMATION
  Report Type: 
  Country: None (occurrence: None)
  Receive Date: 20070413
  Receipt Date: 20070413
  Transmission Date: 20071010
  Serious: No
  Sender: FDA-Public Use
  Company Number: None

PATIENT
  Age: 36 Year
  Sex: Male
  Weight: 79.3795 kg

DRUGS (1)
  1. BUPROPION HCL [Suspect]
     Indication: AFFECTIVE DISORDER
     Dosage: 75 MG BID ORAL  SUMMER - FALL 2006
     Route: 048
     Dates: start: 20060101, end: 20060101

REACTIONS (3)
  - ANXIETY [None]
  - PHARMACEUTICAL PRODUCT COMPLAINT [None]
  - SLEEP DISORDER [None]
